FAERS Safety Report 25210613 (Version 2)
Quarter: 2025Q2

REPORT INFORMATION
  Report Type: Spontaneous
  Country: IN (occurrence: IN)
  Receive Date: 20250417
  Receipt Date: 20250422
  Transmission Date: 20250717
  Serious: Yes (Life-Threatening)
  Sender: PFIZER
  Company Number: IN-MLMSERVICE-20250403-PI468382-00140-2

PATIENT
  Age: 56 Year
  Sex: Female

DRUGS (4)
  1. CARBOPLATIN [Suspect]
     Active Substance: CARBOPLATIN
  2. ETOPOSIDE [Suspect]
     Active Substance: ETOPOSIDE
     Indication: Neuroendocrine carcinoma of the oesophagus
  3. ETOPOSIDE [Suspect]
     Active Substance: ETOPOSIDE
     Indication: Metastases to liver
  4. CISPLATIN [Concomitant]
     Active Substance: CISPLATIN
     Indication: Neuroendocrine carcinoma of the oesophagus

REACTIONS (1)
  - Inappropriate antidiuretic hormone secretion [Recovered/Resolved]
